FAERS Safety Report 7540465-X (Version None)
Quarter: 2011Q2

REPORT INFORMATION
  Report Type: 
  Country: None (occurrence: None)
  Receive Date: 20110610
  Receipt Date: 20110524
  Transmission Date: 20111010
  Serious: Yes (Hospitalization)
  Sender: FDA-Public Use
  Company Number: A0784171A

PATIENT
  Age: 46 Year
  Sex: Male
  Weight: 172.7 kg

DRUGS (7)
  1. AVANDIA [Suspect]
     Indication: DIABETES MELLITUS
     Dosage: 4MG TWICE PER DAY
     Route: 048
     Dates: start: 19990501, end: 20081201
  2. XANAX [Concomitant]
  3. LOTREL [Concomitant]
  4. PERCOCET [Concomitant]
  5. PRILOSEC [Concomitant]
  6. AVANDAMET [Suspect]
     Indication: DIABETES MELLITUS
     Route: 048
     Dates: end: 20070101
  7. LANTUS [Concomitant]

REACTIONS (4)
  - MYOCARDIAL INFARCTION [None]
  - ANGINA UNSTABLE [None]
  - MYOCARDIAL ISCHAEMIA [None]
  - CORONARY ARTERY DISEASE [None]
